FAERS Safety Report 9432575 (Version 1)
Quarter: 2013Q3

REPORT INFORMATION
  Report Type: Spontaneous
  Country: US (occurrence: US)
  Receive Date: 20130731
  Receipt Date: 20130731
  Transmission Date: 20140515
  Serious: Yes (Death, Hospitalization)
  Sender: FDA-Public Use
  Company Number: US-SANOFI-AVENTIS-2013SA076480

PATIENT
  Age: 73 Year
  Sex: Female
  Weight: 49.5 kg

DRUGS (3)
  1. CHLOROQUINE PHOSPHATE [Suspect]
     Indication: SYSTEMIC LUPUS ERYTHEMATOSUS
     Route: 065
  2. DIGOXIN [Concomitant]
     Indication: CARDIAC FAILURE CONGESTIVE
  3. DIURETICS [Concomitant]
     Indication: CARDIAC FAILURE CONGESTIVE

REACTIONS (9)
  - Cardiomyopathy [Fatal]
  - Off label use [Unknown]
  - Ventricular hypertrophy [Fatal]
  - Cardiomegaly [Fatal]
  - Ventricular fibrillation [Fatal]
  - Cardiac arrest [Fatal]
  - Coma [Fatal]
  - Cyanosis [Fatal]
  - Hypotension [Fatal]
